FAERS Safety Report 4830312-9 (Version None)
Quarter: 2005Q4

REPORT INFORMATION
  Report Type: 
  Country: None (occurrence: None)
  Receive Date: 20051117
  Receipt Date: 20051108
  Transmission Date: 20060501
  Serious: Yes (Hospitalization)
  Sender: FDA-Public Use
  Company Number: FR-BRISTOL-MYERS SQUIBB COMPANY-13173786

PATIENT
  Age: 55 Year
  Sex: Male

DRUGS (3)
  1. CETUXIMAB [Suspect]
     Indication: NON-SMALL CELL LUNG CANCER
     Dosage: 09-SEP-05 DOSING DELAYED.
     Route: 041
     Dates: start: 20050624
  2. CISPLATIN [Suspect]
     Indication: NON-SMALL CELL LUNG CANCER
     Dosage: ON 16-SEP-05 DOSING DELAYED.
     Route: 042
     Dates: start: 20050624
  3. VINORELBINE [Suspect]
     Indication: NON-SMALL CELL LUNG CANCER
     Dosage: DOSING HAD PREVIOUSLY BEEN DELAYED ON 02-SEP-05 (PRIOR TO THE EVENT).
     Route: 042
     Dates: start: 20050624

REACTIONS (1)
  - FEBRILE BONE MARROW APLASIA [None]
